FAERS Safety Report 13880400 (Version 2)
Quarter: 2017Q4

REPORT INFORMATION
  Report Type: Spontaneous
  Country: US (occurrence: US)
  Receive Date: 20170818
  Receipt Date: 20171212
  Transmission Date: 20180320
  Serious: No
  Sender: FDA-Public Use
  Company Number: US-LUNDBECK-DKLU2035275

PATIENT
  Sex: Male

DRUGS (5)
  1. NORTHERA [Suspect]
     Active Substance: DROXIDOPA
     Route: 048
  2. NORTHERA [Suspect]
     Active Substance: DROXIDOPA
     Route: 065
  3. NORTHERA [Suspect]
     Active Substance: DROXIDOPA
     Indication: ORTHOSTATIC HYPOTENSION
     Dosage: SCHEDULE B AND TITRATING
     Route: 065
     Dates: start: 20170725
  4. NORTHERA [Suspect]
     Active Substance: DROXIDOPA
     Route: 065
  5. NORTHERA [Suspect]
     Active Substance: DROXIDOPA
     Route: 065

REACTIONS (2)
  - Confusional state [Unknown]
  - Intentional underdose [Unknown]
